FAERS Safety Report 25986276 (Version 1)
Quarter: 2025Q4

REPORT INFORMATION
  Report Type: Spontaneous
  Country: JP (occurrence: JP)
  Receive Date: 20251031
  Receipt Date: 20251031
  Transmission Date: 20260117
  Serious: Yes (Death)
  Sender: ELI LILLY AND COMPANY
  Company Number: JP-ELI_LILLY_AND_COMPANY-JP202510033929

PATIENT
  Age: 92 Year
  Sex: Male

DRUGS (1)
  1. JAYPIRCA [Suspect]
     Active Substance: PIRTOBRUTINIB
     Indication: Mantle cell lymphoma
     Dosage: 200 MG, DAILY
     Route: 048
     Dates: start: 20250902, end: 20250916

REACTIONS (4)
  - Bradycardia [Fatal]
  - Sepsis [Fatal]
  - Malignant neoplasm progression [Fatal]
  - Therapeutic response decreased [Not Recovered/Not Resolved]

NARRATIVE: CASE EVENT DATE: 20250916
